FAERS Safety Report 25084064 (Version 1)
Quarter: 2025Q1

REPORT INFORMATION
  Report Type: Spontaneous
  Country: US (occurrence: None)
  Receive Date: 20250315
  Receipt Date: 20250315
  Transmission Date: 20250409
  Serious: Yes (Hospitalization)
  Sender: FDA-CTU
  Company Number: None

PATIENT
  Sex: Female

DRUGS (2)
  1. BRAFTOVI [Suspect]
     Active Substance: ENCORAFENIB
     Indication: Metastases to skin
     Dosage: 75MG 1 TIME A DAY BY MOUTH?
     Route: 048
     Dates: start: 202311
  2. MEKTOVI [Suspect]
     Active Substance: BINIMETINIB
     Indication: Metastases to skin
     Dosage: 45MG DAILY BY MOUTH?
     Route: 048
     Dates: start: 202311

REACTIONS (1)
  - Brain neoplasm [None]
